FAERS Safety Report 4388159-6 (Version None)
Quarter: 2004Q2

REPORT INFORMATION
  Report Type: 
  Country: None (occurrence: None)
  Receive Date: 20040623
  Receipt Date: 20040602
  Transmission Date: 20050107
  Serious: Yes (Other)
  Sender: FDA-Public Use
  Company Number: USA040668928

PATIENT
  Age: 64 Year
  Sex: Female
  Weight: 49 kg

DRUGS (5)
  1. HUMULIN R [Suspect]
     Indication: DIABETES MELLITUS
     Dosage: 15 U DY
  2. INSULIN [Suspect]
     Indication: DIABETES MELLITUS
     Dates: start: 19390101
  3. HUMALOG [Suspect]
     Indication: DIABETES MELLITUS
     Dosage: 9 U DAY
  4. LANTUS [Concomitant]
  5. NOVOLOG [Concomitant]

REACTIONS (4)
  - MACULAR DEGENERATION [None]
  - PHARMACEUTICAL PRODUCT COMPLAINT [None]
  - RETINAL HAEMORRHAGE [None]
  - VISUAL ACUITY REDUCED [None]
